FAERS Safety Report 17273631 (Version 1)
Quarter: 2020Q1

REPORT INFORMATION
  Report Type: Spontaneous
  Country: US (occurrence: US)
  Receive Date: 20191224
  Receipt Date: 20191224
  Transmission Date: 20200409
  Serious: Yes (Hospitalization)
  Sender: FDA-Public Use
  Company Number: None

PATIENT
  Age: 19 Year
  Sex: Male
  Weight: 49.2 kg

DRUGS (1)
  1. LACTOBACILLUS PLANTARUM 299V [Suspect]
     Active Substance: LACTOBACILLUS PLANTARUM
     Dates: end: 20191212

REACTIONS (7)
  - Vomiting [None]
  - Diarrhoea [None]
  - Asthenia [None]
  - Bone marrow transplant [None]
  - Hypersomnia [None]
  - Hypophagia [None]
  - Nausea [None]

NARRATIVE: CASE EVENT DATE: 20191216
